FAERS Safety Report 11146890 (Version 1)
Quarter: 2015Q2

REPORT INFORMATION
  Report Type: Spontaneous
  Country: DE (occurrence: DE)
  Receive Date: 20150528
  Receipt Date: 20150528
  Transmission Date: 20150821
  Serious: Yes (Other)
  Sender: FDA-Public Use
  Company Number: DE-ASTRAZENECA-2015SE52371

PATIENT
  Age: 70 Year
  Sex: Male

DRUGS (7)
  1. BELOC-ZOK [Suspect]
     Active Substance: METOPROLOL SUCCINATE
     Indication: HYPERTENSION
     Route: 048
  2. HALOPERIDOL. [Interacting]
     Active Substance: HALOPERIDOL
     Route: 065
  3. OXYCODON [Interacting]
     Active Substance: OXYCODONE
     Route: 065
  4. BELOC-ZOK [Interacting]
     Active Substance: METOPROLOL SUCCINATE
     Indication: SYSTOLIC HYPERTENSION
     Route: 048
  5. NALOXONE [Interacting]
     Active Substance: NALOXONE
     Route: 065
  6. LORAZEPAM. [Interacting]
     Active Substance: LORAZEPAM
     Route: 065
  7. PREGABALIN. [Interacting]
     Active Substance: PREGABALIN
     Route: 065

REACTIONS (3)
  - Disturbance in attention [Unknown]
  - Drug interaction [Unknown]
  - Aphasia [Unknown]
